FAERS Safety Report 23355250 (Version 1)
Quarter: 2024Q1

REPORT INFORMATION
  Report Type: Spontaneous
  Country: IE (occurrence: IE)
  Receive Date: 20240102
  Receipt Date: 20240102
  Transmission Date: 20240410
  Serious: Yes (Hospitalization)
  Sender: FDA-Public Use
  Company Number: IE-ALKEM LABORATORIES LIMITED-IE-ALKEM-2023-12455

PATIENT
  Age: 15 Month

DRUGS (3)
  1. SIROLIMUS [Suspect]
     Active Substance: SIROLIMUS
     Indication: Autoimmune lymphoproliferative syndrome
     Dosage: 2 MILLIGRAM/SQ. METER, OD (ONCE DAILY)
     Route: 048
  2. SIROLIMUS [Suspect]
     Active Substance: SIROLIMUS
     Dosage: UNK (RE-COMMENCING)
     Route: 048
  3. PREDNISOLONE [Concomitant]
     Active Substance: PREDNISOLONE
     Indication: Autoimmune lymphoproliferative syndrome
     Dosage: UNK
     Route: 048

REACTIONS (1)
  - Rash [Recovered/Resolved]
